FAERS Safety Report 8421151-0 (Version None)
Quarter: 2012Q2

REPORT INFORMATION
  Report Type: 
  Country: None (occurrence: None)
  Receive Date: 20120604
  Receipt Date: 20120604
  Transmission Date: 20120825
  Serious: Yes (Hospitalization)
  Sender: FDA-Public Use
  Company Number: None

PATIENT

DRUGS (1)
  1. CABAZITAXEL [Suspect]
     Indication: METASTATIC GASTRIC CANCER
     Dosage: CABAZITAXEL EVERY 21 DAYS IV
     Route: 042
     Dates: start: 20120416

REACTIONS (7)
  - PERONEAL NERVE PALSY [None]
  - DISEASE COMPLICATION [None]
  - NEOPLASM PROGRESSION [None]
  - ATAXIA [None]
  - METASTATIC GASTRIC CANCER [None]
  - OEDEMA PERIPHERAL [None]
  - MUSCULAR WEAKNESS [None]
